FAERS Safety Report 16214496 (Version 1)
Quarter: 2019Q2

REPORT INFORMATION
  Report Type: Spontaneous
  Country: US (occurrence: US)
  Receive Date: 20190418
  Receipt Date: 20190418
  Transmission Date: 20190711
  Serious: No
  Sender: FDA-Public Use
  Company Number: US-VIFOR (INTERNATIONAL) INC.-VIT-2019-03518

PATIENT
  Sex: Female

DRUGS (13)
  1. OMEPRAZOLE. [Concomitant]
     Active Substance: OMEPRAZOLE
  2. POLYETHYLENE GLYCOL 3350. [Concomitant]
     Active Substance: POLYETHYLENE GLYCOL 3350
  3. NAMENDA [Concomitant]
     Active Substance: MEMANTINE HYDROCHLORIDE
  4. VITAMIN D2 [Concomitant]
     Active Substance: ERGOCALCIFEROL
  5. LATANOPROST. [Concomitant]
     Active Substance: LATANOPROST
  6. LEVEMIR [Concomitant]
     Active Substance: INSULIN DETEMIR
  7. VELTASSA [Suspect]
     Active Substance: PATIROMER
     Route: 048
  8. COREG [Concomitant]
     Active Substance: CARVEDILOL
  9. EXELON [Concomitant]
     Active Substance: RIVASTIGMINE TARTRATE
  10. ASPIRIN. [Concomitant]
     Active Substance: ASPIRIN
  11. ISOSORBIDE DINITRATE. [Concomitant]
     Active Substance: ISOSORBIDE DINITRATE
  12. VELTASSA [Suspect]
     Active Substance: PATIROMER
     Indication: HYPERKALAEMIA
     Route: 048
     Dates: start: 20160921
  13. HYDROCHLOROTHIAZIDE. [Concomitant]
     Active Substance: HYDROCHLOROTHIAZIDE

REACTIONS (3)
  - Fatigue [Unknown]
  - Product dose omission [Unknown]
  - Off label use [Unknown]
